FAERS Safety Report 15500542 (Version 13)
Quarter: 2019Q3

REPORT INFORMATION
  Report Type: Spontaneous
  Country: US (occurrence: US)
  Receive Date: 20181015
  Receipt Date: 20190819
  Transmission Date: 20191004
  Serious: Yes (Other)
  Sender: FDA-Public Use
  Company Number: US-PFIZER INC-2018418664

PATIENT
  Age: 60 Year
  Sex: Female

DRUGS (52)
  1. LEVOTHYROXINE. [Concomitant]
     Active Substance: LEVOTHYROXINE
     Indication: THYROID DISORDER
     Dosage: 1 DF, ONCE A DAY
     Route: 048
     Dates: start: 20171213
  2. KLONOPIN [Concomitant]
     Active Substance: CLONAZEPAM
     Indication: SEIZURE
     Dosage: 1 DF, AS NEEDED AT BEDTIME
     Route: 048
  3. FORTEO [Concomitant]
     Active Substance: TERIPARATIDE
     Dosage: 0.08 ML, DAILY INTO THE THIGH OR ABDOMINAL WALL
     Route: 058
  4. TRILEPTAL [Concomitant]
     Active Substance: OXCARBAZEPINE
     Dosage: 300 MG, (2 AND 1/2 TABLET) DAILY
     Route: 048
  5. LOSARTAN. [Concomitant]
     Active Substance: LOSARTAN
     Indication: CARDIAC DISORDER
     Dosage: 1 DF, DAILY
     Route: 048
     Dates: start: 20170217
  6. ATORVASTATIN [Concomitant]
     Active Substance: ATORVASTATIN
     Dosage: 20 MG, (1 TABLET) 1X/DAY
     Route: 048
  7. BLACK COHOSH ROOT EXTRACT [Concomitant]
     Dosage: 1 DF, DAILY
     Route: 048
     Dates: start: 20171213
  8. KEPPRA [Concomitant]
     Active Substance: LEVETIRACETAM
     Dosage: 0.5 DF, 2X/DAY (AS DIRECTED)
     Route: 048
     Dates: start: 20180626
  9. LEVOTHYROXINE. [Concomitant]
     Active Substance: LEVOTHYROXINE
     Dosage: 50 UG, (1 TABLET) 1X/DAY
     Route: 048
  10. LISINOPRIL. [Concomitant]
     Active Substance: LISINOPRIL
     Dosage: 5 MG, (1 TABLET) 1X/DAY
     Route: 048
  11. LAMICTAL [Concomitant]
     Active Substance: LAMOTRIGINE
     Indication: EPILEPSY
     Dosage: UNK
  12. OXCARBAZEPINE. [Concomitant]
     Active Substance: OXCARBAZEPINE
     Indication: SEIZURE
     Dosage: UNK, 1X/DAY (2 AND HALF)
     Route: 048
  13. LEXAPRO [Concomitant]
     Active Substance: ESCITALOPRAM OXALATE
     Indication: AFFECTIVE DISORDER
     Dosage: 10 MG, 1X/DAY
  14. CYCLOBENZAPRINE. [Concomitant]
     Active Substance: CYCLOBENZAPRINE
     Dosage: UNK, DAILY (0.5 TO 1 TABLET AT BEDTIME)
     Route: 048
  15. DILANTIN [Suspect]
     Active Substance: PHENYTOIN
     Indication: SEIZURE
     Dosage: UNK
     Route: 048
  16. TRILEPTAL [Concomitant]
     Active Substance: OXCARBAZEPINE
     Indication: SEIZURE
     Dosage: 2.5 DF, DAILY (AS DIRECTED)
     Route: 048
     Dates: start: 20170217
  17. ONE DAILY FOR WOMEN [Concomitant]
     Dosage: UNK (AS DIRECTED)
     Dates: start: 20170217
  18. ONE DAILY FOR WOMEN [Concomitant]
     Dosage: UNK
     Dates: start: 20180402
  19. ZOMIG [Concomitant]
     Active Substance: ZOLMITRIPTAN
     Dosage: UNK
  20. RIZATRIPTAN BENZOATE. [Concomitant]
     Active Substance: RIZATRIPTAN BENZOATE
     Indication: MIGRAINE
     Dosage: UNK, DAILY (AT NIGHT), (1 TABLET)
     Route: 048
  21. FORTEO [Concomitant]
     Active Substance: TERIPARATIDE
     Dosage: 20 UG, 1X/DAY FOR TWO YEARS
  22. KEPPRA [Concomitant]
     Active Substance: LEVETIRACETAM
     Indication: SEIZURE
     Dosage: 0.5 DF, 2X/DAY (AS DIRECTED)
     Route: 048
     Dates: start: 20171213
  23. KEPPRA [Concomitant]
     Active Substance: LEVETIRACETAM
     Dosage: 0.5 DF (HALF TABLET), 2X/DAY
     Route: 048
  24. KEPPRA [Concomitant]
     Active Substance: LEVETIRACETAM
     Dosage: 250 MG, 2X/DAY
  25. LEVOTHYROXINE. [Concomitant]
     Active Substance: LEVOTHYROXINE
     Dosage: 1 DF, DAILY (AS DIRECTED)
     Route: 048
     Dates: start: 20180625
  26. LEVOTHYROXINE. [Concomitant]
     Active Substance: LEVOTHYROXINE
     Dosage: 50 MG, 1X/DAY
  27. CALAN [Concomitant]
     Active Substance: VERAPAMIL HYDROCHLORIDE
     Dosage: UNK
  28. LEVETIRACETAM. [Concomitant]
     Active Substance: LEVETIRACETAM
     Indication: SEIZURE
     Dosage: UNK, 2X/DAY (HALF TABLET)
     Route: 048
  29. ESCITALOPRAM [Concomitant]
     Active Substance: ESCITALOPRAM OXALATE
     Dosage: UNK, 1X/DAY (1 TABLET)
     Route: 048
  30. ATORVASTATIN [Concomitant]
     Active Substance: ATORVASTATIN
     Dosage: 1 DF, ONCE A DAY
     Route: 048
     Dates: start: 20171213
  31. BLACK COHOSH ROOT EXTRACT [Concomitant]
     Dosage: 1 DF, DAILY (AS DIRECTED)
     Route: 048
     Dates: start: 20180626
  32. LISINOPRIL. [Concomitant]
     Active Substance: LISINOPRIL
     Dosage: 1 DF, ONCE A DAY
     Route: 048
     Dates: start: 20170217
  33. VITAMIN D [Concomitant]
     Active Substance: VITAMIN D NOS
     Dosage: 1 DF, DAILY (AS DIRECTED)
     Route: 048
     Dates: start: 20170502
  34. LIPITOR [Concomitant]
     Active Substance: ATORVASTATIN CALCIUM
     Indication: BLOOD CHOLESTEROL ABNORMAL
     Dosage: 20 MG, 1X/DAY
  35. ZOFRAN ODT [Concomitant]
     Active Substance: ONDANSETRON HYDROCHLORIDE
     Indication: ABDOMINAL DISCOMFORT
     Dosage: 4 MG, AS NEEDED
  36. MAXALT [Concomitant]
     Active Substance: RIZATRIPTAN BENZOATE
     Dosage: TAKE 1 TABLET, MAY REPEAT AT 2 HOUR INTERVALS; DO NOT EXCEED 30 MG IN 24 HOURS
     Route: 048
  37. LOSARTAN. [Concomitant]
     Active Substance: LOSARTAN
     Dosage: 25 MG, 1X/DAY
  38. VITAMIN C [Concomitant]
     Active Substance: ASCORBIC ACID
     Dosage: UNK (AS DIRECTED)
     Dates: start: 20170217
  39. VITAMIN C [Concomitant]
     Active Substance: ASCORBIC ACID
     Dosage: UNK
     Dates: start: 20180402
  40. FOSTEUM [Concomitant]
     Active Substance: CHOLECALCIFEROL\GENISTEIN\ZINC GLYCINATE
     Dosage: 1 DF, DAILY (AS DIRECTED)
     Route: 048
     Dates: start: 20180626
  41. LEXAPRO [Concomitant]
     Active Substance: ESCITALOPRAM OXALATE
     Indication: DEPRESSION
  42. MAXALT [Concomitant]
     Active Substance: RIZATRIPTAN BENZOATE
     Dosage: 10 MG, (DISINTEGRATING 1 TABLET) AS NEEDED
     Route: 048
  43. TRILEPTAL [Concomitant]
     Active Substance: OXCARBAZEPINE
     Dosage: DAILY, 300 MG IN AM AND 150 MG IN PM
  44. LOSARTAN. [Concomitant]
     Active Substance: LOSARTAN
     Dosage: 50 MG, DAILY
     Route: 048
  45. ATORVASTATIN [Concomitant]
     Active Substance: ATORVASTATIN
     Dosage: 1 DF, DAILY (AS DIRECTED)
     Route: 048
     Dates: start: 20180626
  46. VITAMIN D [Concomitant]
     Active Substance: VITAMIN D NOS
     Dosage: UNK, 1X/DAY
  47. ZINC. [Concomitant]
     Active Substance: ZINC
     Dosage: 0.5 DF, 2X/WEEK (AS DIRECTED)
     Route: 048
     Dates: start: 20170502
  48. FOLIC ACID. [Concomitant]
     Active Substance: FOLIC ACID
     Dosage: 1 DF, 1X/DAY
     Route: 048
  49. MAXALT [Concomitant]
     Active Substance: RIZATRIPTAN BENZOATE
     Indication: MIGRAINE
     Dosage: 1 DF, AS NEEDED (AS DIRECTED)
     Route: 048
     Dates: start: 20170217
  50. VITAMIN C [Concomitant]
     Active Substance: ASCORBIC ACID
     Dosage: UNK, 1X/DAY
  51. FOSTEUM [Concomitant]
     Active Substance: CHOLECALCIFEROL\GENISTEIN\ZINC GLYCINATE
     Indication: OSTEOPOROSIS
     Dosage: UNK
     Dates: start: 20170918
  52. ZARONTIN [Concomitant]
     Active Substance: ETHOSUXIMIDE
     Indication: EPILEPSY
     Dosage: UNK

REACTIONS (10)
  - Visual impairment [Unknown]
  - Cerebellar atrophy [Unknown]
  - Ataxia [Unknown]
  - Psychotic disorder [Unknown]
  - Hallucination [Unknown]
  - Poor quality sleep [Unknown]
  - Drug hypersensitivity [Unknown]
  - Anxiety disorder [Unknown]
  - Fall [Unknown]
  - Insomnia [Unknown]

NARRATIVE: CASE EVENT DATE: 20100315
